FAERS Safety Report 14834126 (Version 1)
Quarter: 2018Q2

REPORT INFORMATION
  Report Type: Spontaneous
  Country: JP (occurrence: JP)
  Receive Date: 20180501
  Receipt Date: 20180501
  Transmission Date: 20180711
  Serious: Yes (Death)
  Sender: FDA-Public Use
  Company Number: JP-BAYER-2018-078105

PATIENT
  Age: 71 Year
  Sex: Male

DRUGS (4)
  1. ABIRATERONE [Concomitant]
     Active Substance: ABIRATERONE
     Dosage: UNK
  2. XOFIGO [Suspect]
     Active Substance: RADIUM RA-223 DICHLORIDE
     Indication: METASTASES TO BONE
     Dosage: 55KBQ/KG, Q1MON
     Route: 042
     Dates: start: 20161124, end: 20161124
  3. DENOSUMAB [Concomitant]
     Active Substance: DENOSUMAB
  4. XOFIGO [Suspect]
     Active Substance: RADIUM RA-223 DICHLORIDE
     Indication: HORMONE-REFRACTORY PROSTATE CANCER
     Dosage: 55KBQ/KG, Q1MON
     Route: 042
     Dates: start: 20161024, end: 20161024

REACTIONS (3)
  - Death [Fatal]
  - White blood cell count decreased [None]
  - Diarrhoea [None]

NARRATIVE: CASE EVENT DATE: 201704
